FAERS Safety Report 8318385-2 (Version None)
Quarter: 2012Q2

REPORT INFORMATION
  Report Type: 
  Country: None (occurrence: None)
  Receive Date: 20120425
  Receipt Date: 20120409
  Transmission Date: 20120825
  Serious: Yes (Death, Hospitalization)
  Sender: FDA-Public Use
  Company Number: 2012MA004733

PATIENT
  Age: 36 Year
  Sex: Female

DRUGS (2)
  1. PHENYTOIN [Suspect]
     Indication: CONVULSION PROPHYLAXIS
     Dosage: 300 MG, QD
  2. DEXAMETHASONE [Suspect]
     Indication: BRAIN OEDEMA
     Dosage: 20 MG, QD

REACTIONS (4)
  - LOWER RESPIRATORY TRACT INFECTION [None]
  - FEBRILE NEUTROPENIA [None]
  - ERYTHEMA MULTIFORME [None]
  - RESPIRATORY FAILURE [None]
